FAERS Safety Report 8600814-8 (Version None)
Quarter: 2012Q3

REPORT INFORMATION
  Report Type: 
  Country: None (occurrence: None)
  Receive Date: 20120817
  Receipt Date: 20120809
  Transmission Date: 20120928
  Serious: Yes (Hospitalization, Other)
  Sender: FDA-Public Use
  Company Number: US-BAYER-2012-017518

PATIENT
  Age: 33 Year
  Sex: Female
  Weight: 72.562 kg

DRUGS (7)
  1. DICYCLOMINE [Concomitant]
     Indication: PAIN
     Dosage: 10 MG, TID, PRN
  2. YAZ [Suspect]
     Indication: MENORRHAGIA
  3. YAZ [Suspect]
     Indication: MENSTRUAL CYCLE MANAGEMENT
     Dosage: UNK
     Route: 048
     Dates: start: 20071201, end: 20090901
  4. MAGNESIUM HYDROXIDE TAB [Concomitant]
  5. GAS-X [Concomitant]
  6. PROTONIX [Concomitant]
     Dosage: 40 MG, UNK
  7. PEPCID [Concomitant]

REACTIONS (8)
  - PAIN [None]
  - DEFORMITY [None]
  - BACK PAIN [None]
  - CHOLECYSTITIS CHRONIC [None]
  - ANXIETY [None]
  - CHOLELITHIASIS [None]
  - ABDOMINAL PAIN [None]
  - ANHEDONIA [None]
